FAERS Safety Report 5426987-6 (Version None)
Quarter: 2007Q3

REPORT INFORMATION
  Report Type: 
  Country: None (occurrence: None)
  Receive Date: 20070731
  Receipt Date: 20070508
  Transmission Date: 20080115
  Serious: No
  Sender: FDA-Public Use
  Company Number: US200704005200

PATIENT
  Age: 37 Year
  Sex: Female
  Weight: 122.4 kg

DRUGS (3)
  1. BYETTA [Suspect]
     Indication: TYPE 2 DIABETES MELLITUS
     Dosage: 5 UG, 2/D, SUBCUTANEOUS
     Route: 058
     Dates: start: 20070201
  2. EXENATIDE [Concomitant]
  3. MAXIDE (HYDROCHLOROTHIAZIDE, TRIAMTERENE) [Concomitant]

REACTIONS (8)
  - ABDOMINAL DISTENSION [None]
  - ASTHENIA [None]
  - GAIT DISTURBANCE [None]
  - HYPERPHAGIA [None]
  - JOINT SWELLING [None]
  - JOINT WARMTH [None]
  - RHEUMATOID ARTHRITIS [None]
  - WEIGHT INCREASED [None]
